FAERS Safety Report 5740428-0 (Version None)
Quarter: 2008Q2

REPORT INFORMATION
  Report Type: 
  Country: None (occurrence: None)
  Receive Date: 20080516
  Receipt Date: 20080516
  Transmission Date: 20081010
  Serious: Yes (Other)
  Sender: FDA-Public Use
  Company Number: A0728176A

PATIENT

DRUGS (1)
  1. ALLI [Suspect]
     Indication: DRUG USE FOR UNKNOWN INDICATION

REACTIONS (5)
  - FLUID RETENTION [None]
  - HEPATIC FUNCTION ABNORMAL [None]
  - METABOLIC DISORDER [None]
  - MUSCLE ATROPHY [None]
  - STARVATION [None]
